FAERS Safety Report 12347760 (Version 1)
Quarter: 2016Q2

REPORT INFORMATION
  Report Type: Spontaneous
  Country: US (occurrence: US)
  Receive Date: 20160509
  Receipt Date: 20160509
  Transmission Date: 20160815
  Serious: No
  Sender: FDA-Public Use
  Company Number: US-GLAXOSMITHKLINE-US2016057160

PATIENT
  Age: 77 Year
  Sex: Female

DRUGS (1)
  1. VOLTAREN [Suspect]
     Active Substance: DICLOFENAC SODIUM
     Indication: RHEUMATOID ARTHRITIS
     Dosage: 1 G, BID
     Route: 061
     Dates: start: 20160407

REACTIONS (3)
  - Off label use [Unknown]
  - Drug administered at inappropriate site [Unknown]
  - Incorrect dosage administered [Unknown]
